FAERS Safety Report 10208883 (Version 2)
Quarter: 2014Q2

REPORT INFORMATION
  Report Type: Spontaneous
  Country: US (occurrence: US)
  Receive Date: 20140530
  Receipt Date: 20140624
  Transmission Date: 20141212
  Serious: Yes (Other)
  Sender: FDA-Public Use
  Company Number: US-ASTRAZENECA-2014SE35678

PATIENT
  Age: 46 Year
  Sex: Male
  Weight: 88.5 kg

DRUGS (11)
  1. SEROQUEL [Suspect]
     Indication: POST-TRAUMATIC STRESS DISORDER
     Route: 048
     Dates: start: 2009
  2. SEROQUEL [Suspect]
     Indication: BIPOLAR DISORDER
     Route: 048
     Dates: start: 2009
  3. SEROQUEL [Suspect]
     Indication: DEPRESSION
     Route: 048
     Dates: start: 2009
  4. SEROQUEL [Suspect]
     Indication: POST-TRAUMATIC STRESS DISORDER
     Route: 048
     Dates: start: 20100209, end: 20140114
  5. SEROQUEL [Suspect]
     Indication: BIPOLAR DISORDER
     Route: 048
     Dates: start: 20100209, end: 20140114
  6. SEROQUEL [Suspect]
     Indication: DEPRESSION
     Route: 048
     Dates: start: 20100209, end: 20140114
  7. ANTIDEPRESSANTS [Suspect]
     Indication: DEPRESSION
     Route: 065
  8. XANAX [Concomitant]
     Indication: DEPRESSION
     Route: 048
     Dates: start: 2009
  9. XANAX [Concomitant]
     Indication: ANXIETY
     Route: 048
     Dates: start: 2009
  10. DOXEPIN [Concomitant]
  11. KLONOPIN [Concomitant]

REACTIONS (5)
  - Coma [Recovered/Resolved]
  - Suicidal ideation [Unknown]
  - Weight fluctuation [Unknown]
  - Drug dose omission [Recovered/Resolved]
  - Intentional product misuse [Not Recovered/Not Resolved]
